FAERS Safety Report 11342750 (Version 2)
Quarter: 2015Q3

REPORT INFORMATION
  Report Type: Spontaneous
  Country: US (occurrence: US)
  Receive Date: 20150805
  Receipt Date: 20150914
  Transmission Date: 20151125
  Serious: No
  Sender: FDA-Public Use
  Company Number: US-PFIZER INC-2015155943

PATIENT
  Age: 58 Year
  Sex: Male

DRUGS (1)
  1. LYRICA [Suspect]
     Active Substance: PREGABALIN
     Indication: MONONEURITIS
     Dosage: 300 MG, 2X/DAY
     Route: 048

REACTIONS (2)
  - Product use issue [Unknown]
  - Pain [Unknown]
